FAERS Safety Report 8858970 (Version 1)
Quarter: 2012Q4

REPORT INFORMATION
  Report Type: 
  Country: US (occurrence: US)
  Receive Date: 20121024
  Receipt Date: 20121024
  Transmission Date: 20130627
  Serious: No
  Sender: FDA-Public Use
  Company Number: US-009507513-1210USA005703

PATIENT
  Sex: Female

DRUGS (2)
  1. DULERA [Suspect]
     Indication: CHRONIC OBSTRUCTIVE PULMONARY DISEASE
     Dosage: UNK
     Dates: start: 201209
  2. ASMANEX TWISTHALER [Concomitant]
     Dosage: UNK

REACTIONS (2)
  - Drug effect decreased [Recovering/Resolving]
  - Hypokinesia [Recovering/Resolving]
